FAERS Safety Report 10911558 (Version 1)
Quarter: 2015Q1

REPORT INFORMATION
  Report Type: Spontaneous
  Country: HU (occurrence: HU)
  Receive Date: 20150313
  Receipt Date: 20150313
  Transmission Date: 20150721
  Serious: Yes (Other)
  Sender: FDA-Public Use
  Company Number: HU-BAUSCH-BL-2015-003799

PATIENT
  Age: 65 Year
  Sex: Male

DRUGS (5)
  1. MEFORAL [Concomitant]
     Indication: DIABETES MELLITUS
  2. FLECTOR [Suspect]
     Active Substance: DICLOFENAC EPOLAMINE
     Indication: BONE PAIN
  3. VOLTAREN [Suspect]
     Active Substance: DICLOFENAC SODIUM
     Indication: BONE PAIN
  4. DIAPREL MR [Concomitant]
     Indication: DIABETES MELLITUS
  5. DICLOFENAC DUO PHARMAVIT [Suspect]
     Active Substance: DICLOFENAC SODIUM
     Indication: BONE PAIN

REACTIONS (2)
  - Feeding disorder [Not Recovered/Not Resolved]
  - Abdominal pain upper [Not Recovered/Not Resolved]
